FAERS Safety Report 7585630-0 (Version None)
Quarter: 2011Q3

REPORT INFORMATION
  Report Type: 
  Country: None (occurrence: None)
  Receive Date: 20110701
  Receipt Date: 20110622
  Transmission Date: 20111222
  Serious: Yes (Hospitalization, Other)
  Sender: FDA-Public Use
  Company Number: JP-AMGEN-US381866

PATIENT
  Age: 53 Year
  Sex: Male
  Weight: 53 kg

DRUGS (14)
  1. LOXONIN [Concomitant]
     Indication: RHEUMATOID ARTHRITIS
     Dosage: UNK UNK, UNK
     Route: 048
  2. ETANERCEPT [Suspect]
     Indication: RHEUMATOID ARTHRITIS
     Dosage: 25 MG, 2 TIMES/WK
     Route: 058
     Dates: start: 20071113, end: 20080725
  3. MEDROL [Concomitant]
     Indication: RHEUMATOID ARTHRITIS
     Dosage: 16 MG, QD
     Route: 048
     Dates: start: 20070301, end: 20080512
  4. ETANERCEPT [Suspect]
     Dosage: 25 MG, 2 TIMES/WK
     Route: 058
     Dates: start: 20080728, end: 20090903
  5. VOLTAREN [Concomitant]
     Indication: RHEUMATOID ARTHRITIS
     Dosage: UNK UNK, UNK
     Route: 054
  6. ISONIAZID [Concomitant]
     Indication: PROPHYLAXIS
     Dosage: UNK UNK, UNK
     Route: 048
     Dates: start: 20071030
  7. LOXONIN [Concomitant]
     Dosage: UNK
     Route: 048
  8. OMEPRAZOLE [Concomitant]
     Indication: PROPHYLAXIS
     Dosage: UNK
  9. MARZULENE S [Concomitant]
     Indication: PROPHYLAXIS
     Dosage: UNK
  10. ISONIAZID [Concomitant]
     Indication: PROPHYLAXIS
     Dosage: UNK
     Route: 048
     Dates: start: 20071030
  11. DEPAS [Concomitant]
     Indication: PROPHYLAXIS
     Dosage: UNK
  12. MEDROL [Concomitant]
     Dosage: 12 MG, QD
     Route: 048
     Dates: start: 20080513
  13. TACROLIMUS [Concomitant]
     Dosage: 3 MG, QD
     Route: 048
     Dates: start: 20070419, end: 20071213
  14. AMOBAN [Concomitant]
     Indication: PROPHYLAXIS
     Dosage: UNK

REACTIONS (1)
  - LEUKOENCEPHALOPATHY [None]
